FAERS Safety Report 12266187 (Version 1)
Quarter: 2016Q2

REPORT INFORMATION
  Report Type: Spontaneous
  Country: US (occurrence: None)
  Receive Date: 20160413
  Receipt Date: 20160413
  Transmission Date: 20160815
  Serious: No
  Sender: FDA-Public Use
  Company Number: None

PATIENT
  Age: 35 Year
  Sex: Female
  Weight: 124.74 kg

DRUGS (1)
  1. ZIPRASIDONE, 20 MG [Suspect]
     Active Substance: ZIPRASIDONE HYDROCHLORIDE
     Indication: SCHIZOAFFECTIVE DISORDER
     Dosage: 30 CAPSULE(S) INCE A DAY TAKEN BY MOUTH
     Route: 048
     Dates: start: 20160405, end: 20160410

REACTIONS (5)
  - Kidney infection [None]
  - Diarrhoea [None]
  - Haematuria [None]
  - Dehydration [None]
  - Vomiting [None]

NARRATIVE: CASE EVENT DATE: 20160411
